FAERS Safety Report 7942996-7 (Version None)
Quarter: 2011Q4

REPORT INFORMATION
  Report Type: 
  Country: None (occurrence: None)
  Receive Date: 20111128
  Receipt Date: 20111116
  Transmission Date: 20120403
  Serious: Yes (Hospitalization)
  Sender: FDA-Public Use
  Company Number: US-ACTELION-A-NJ2011-50088

PATIENT

DRUGS (1)
  1. TRACLEER [Suspect]
     Indication: PULMONARY ARTERIAL HYPERTENSION
     Dosage: UNK
     Route: 048
     Dates: start: 20090824

REACTIONS (5)
  - DYSPNOEA [None]
  - FATIGUE [None]
  - NASOPHARYNGITIS [None]
  - BLOOD PRESSURE INCREASED [None]
  - CYSTITIS [None]
